FAERS Safety Report 7688775-X (Version None)
Quarter: 2011Q3

REPORT INFORMATION
  Report Type: 
  Country: None (occurrence: None)
  Receive Date: 20110817
  Receipt Date: 20110812
  Transmission Date: 20111222
  Serious: Yes (Hospitalization, Other)
  Sender: FDA-Public Use
  Company Number: GXKR2011DE02549

PATIENT
  Sex: Male
  Weight: 3.07 kg

DRUGS (5)
  1. SERTRALINE HYDROCHLORIDE [Suspect]
     Dosage: UNK MG, UNK
     Route: 064
  2. L-THYROXIN-JOD BETA [Concomitant]
     Indication: AUTOIMMUNE THYROIDITIS
     Dosage: UNK MG, UNK
     Route: 064
  3. LEVOTHYROXINE SODIUM [Concomitant]
     Indication: AUTOIMMUNE THYROIDITIS
     Dosage: UNK MG, UNK
     Route: 064
  4. FOLIC ACID [Concomitant]
     Dosage: UNK MG, UNK
     Route: 064
  5. SERTRALINE HYDROCHLORIDE [Suspect]
     Dosage: MATERNAL DOSE: 150 MG, QD
     Route: 064

REACTIONS (5)
  - NEONATAL RESPIRATORY ACIDOSIS [None]
  - BRADYCARDIA NEONATAL [None]
  - TORTICOLLIS [None]
  - NEONATAL RESPIRATORY DISTRESS SYNDROME [None]
  - MATERNAL EXPOSURE DURING PREGNANCY [None]
